FAERS Safety Report 25826335 (Version 1)
Quarter: 2025Q3

REPORT INFORMATION
  Report Type: Report from Study
  Country: US (occurrence: US)
  Receive Date: 20250920
  Receipt Date: 20250920
  Transmission Date: 20251020
  Serious: Yes (Other)
  Sender: ABBVIE
  Company Number: US-ABBVIE-6466321

PATIENT
  Age: 72 Year
  Sex: Male

DRUGS (1)
  1. RINVOQ [Suspect]
     Active Substance: UPADACITINIB
     Indication: Crohn^s disease
     Route: 048
     Dates: start: 20250620

REACTIONS (6)
  - Pulmonary thrombosis [Recovered/Resolved with Sequelae]
  - Eye pain [Recovering/Resolving]
  - Faecal calprotectin abnormal [Unknown]
  - Lacrimation increased [Recovering/Resolving]
  - Erythema [Recovering/Resolving]
  - Superficial injury of eye [Recovering/Resolving]

NARRATIVE: CASE EVENT DATE: 20250101
